FAERS Safety Report 18539245 (Version 1)
Quarter: 2020Q4

REPORT INFORMATION
  Report Type: Spontaneous
  Country: US (occurrence: US)
  Receive Date: 20201123
  Receipt Date: 20201123
  Transmission Date: 20210114
  Serious: No
  Sender: FDA-Public Use
  Company Number: None

PATIENT
  Age: 29 Year
  Sex: Female
  Weight: 60.75 kg

DRUGS (4)
  1. AKLIEF [Suspect]
     Active Substance: TRIFAROTENE
     Indication: ACNE
     Dosage: ?          OTHER FREQUENCY:3 TIMES A WEEK;?
     Route: 061
     Dates: start: 20201026, end: 20201104
  2. ZINC. [Concomitant]
     Active Substance: ZINC
  3. TURMERIC SUPPLEMENTS [Concomitant]
  4. VITAMIN C [Concomitant]
     Active Substance: ASCORBIC ACID

REACTIONS (6)
  - Sensitive skin [None]
  - Erythema [None]
  - Skin exfoliation [None]
  - Skin weeping [None]
  - Skin fissures [None]
  - Dermatitis [None]

NARRATIVE: CASE EVENT DATE: 20201105
